FAERS Safety Report 4332375-6 (Version None)
Quarter: 2004Q2

REPORT INFORMATION
  Report Type: 
  Country: None (occurrence: None)
  Receive Date: 20040401
  Receipt Date: 20040324
  Transmission Date: 20050107
  Serious: Yes (Death)
  Sender: FDA-Public Use
  Company Number: JP-JNJFOC-20040305203

PATIENT
  Age: 78 Year
  Sex: Male

DRUGS (1)
  1. LEVOFLOXACIN [Suspect]
     Indication: RESPIRATORY TRACT INFECTION
     Dosage: 500 MG, 1 IN 1 DAY, ORAL
     Route: 048
     Dates: start: 20040126, end: 20040126

REACTIONS (8)
  - CARDIO-RESPIRATORY ARREST [None]
  - LEUKOPENIA [None]
  - MULTI-ORGAN FAILURE [None]
  - PNEUMOCOCCAL INFECTION [None]
  - RENAL FUNCTION TEST ABNORMAL [None]
  - SEPSIS [None]
  - SEPTIC SHOCK [None]
  - THROMBOCYTOPENIA [None]
